FAERS Safety Report 18248984 (Version 1)
Quarter: 2020Q3

REPORT INFORMATION
  Report Type: Spontaneous
  Country: US (occurrence: US)
  Receive Date: 20200909
  Receipt Date: 20200909
  Transmission Date: 20201103
  Serious: No
  Sender: FDA-Public Use
  Company Number: US-PERRIGO-20US011404

PATIENT
  Age: 39 Year
  Sex: Female
  Weight: 68.03 kg

DRUGS (2)
  1. ALBUTEROL SULFATE. [Suspect]
     Active Substance: ALBUTEROL SULFATE
     Dosage: 180 MCG, EVERY 4 HOURS PRN
     Route: 055
     Dates: start: 202006, end: 20200806
  2. ALBUTEROL SULFATE. [Suspect]
     Active Substance: ALBUTEROL SULFATE
     Indication: WHEEZING
     Dosage: 180 MCG, EVERY 4 HOURS PRN
     Route: 055
     Dates: start: 202006, end: 20200806

REACTIONS (2)
  - Drug administered in wrong device [Recovered/Resolved]
  - Device delivery system issue [Recovered/Resolved]

NARRATIVE: CASE EVENT DATE: 202006
